FAERS Safety Report 20980858 (Version 3)
Quarter: 2022Q4

REPORT INFORMATION
  Report Type: Report from Study
  Country: AR (occurrence: AR)
  Receive Date: 20220620
  Receipt Date: 20221002
  Transmission Date: 20230113
  Serious: Yes (Death, Hospitalization, Other)
  Sender: FDA-Public Use
  Company Number: AR-NOVARTISPH-NVSC2022AR139083

PATIENT
  Age: 48 Year
  Sex: Female

DRUGS (1)
  1. KISQALI [Suspect]
     Active Substance: RIBOCICLIB
     Indication: Breast cancer metastatic
     Dosage: 600 MG, QD
     Route: 048
     Dates: start: 20220310

REACTIONS (6)
  - Death [Fatal]
  - Decreased immune responsiveness [Unknown]
  - Metastases to bone marrow [Unknown]
  - Anaemia [Unknown]
  - Drug ineffective [Unknown]
  - Cancer pain [Unknown]

NARRATIVE: CASE EVENT DATE: 20220614
